FAERS Safety Report 4501543-2 (Version None)
Quarter: 2004Q4

REPORT INFORMATION
  Report Type: 
  Country: None (occurrence: None)
  Receive Date: 20041115
  Receipt Date: 20041109
  Transmission Date: 20050328
  Serious: Yes (Hospitalization)
  Sender: FDA-Public Use
  Company Number: DE-MERCK-0411DEU00213

PATIENT
  Age: 90 Year
  Sex: Female

DRUGS (2)
  1. VIOXX [Suspect]
     Indication: POLYARTHRITIS
     Route: 048
     Dates: start: 20031020, end: 20040301
  2. VIOXX [Suspect]
     Indication: ARTHRITIS
     Route: 048
     Dates: start: 20031020, end: 20040301

REACTIONS (1)
  - TRANSIENT ISCHAEMIC ATTACK [None]
